FAERS Safety Report 23277964 (Version 1)
Quarter: 2023Q4

REPORT INFORMATION
  Report Type: Spontaneous
  Country: US (occurrence: US)
  Receive Date: 20231208
  Receipt Date: 20231208
  Transmission Date: 20240109
  Serious: No
  Sender: FDA-Public Use
  Company Number: MYC23-00194

PATIENT

DRUGS (4)
  1. VIVJOA [Suspect]
     Active Substance: OTESECONAZOLE
     Indication: Oral candidiasis
     Dosage: 600 MILLIGRAM, SINGLE, DAY ONE
     Route: 048
  2. VIVJOA [Suspect]
     Active Substance: OTESECONAZOLE
     Indication: Vulvovaginal candidiasis
     Dosage: 450 MILLIGRAM, SINGLE, DAY TWO
     Route: 048
  3. VIVJOA [Suspect]
     Active Substance: OTESECONAZOLE
     Dosage: 150 MILLIGRAM, WEEKLY, STARTING DAY 14 ONE CAP EVERY SEVEN DAYS FOR 11 WEEKS
     Route: 048
  4. ZANUBRUTINIB [Concomitant]
     Active Substance: ZANUBRUTINIB
     Indication: Chemotherapy
     Dosage: UNKNOWN
     Route: 065

REACTIONS (1)
  - Off label use [Unknown]

NARRATIVE: CASE EVENT DATE: 20230101
